FAERS Safety Report 14405462 (Version 2)
Quarter: 2018Q1

REPORT INFORMATION
  Report Type: Spontaneous
  Country: US (occurrence: US)
  Receive Date: 20180118
  Receipt Date: 20180212
  Transmission Date: 20180509
  Serious: No
  Sender: FDA-Public Use
  Company Number: US-PFIZER INC-2018017790

PATIENT
  Age: 76 Year
  Sex: Female
  Weight: 63 kg

DRUGS (11)
  1. AMILORIDE HCL W/ HYDROCHLOROTHIAZIDE [Concomitant]
     Active Substance: AMILORIDE HYDROCHLORIDE\HYDROCHLOROTHIAZIDE
     Indication: HYPERTENSION
     Dosage: 5 MG/ HYDROCHLOROTHIAZIDE: 50MG), 1X/DAY
     Route: 048
  2. PULMICORT TURBUHALER [Concomitant]
     Active Substance: BUDESONIDE
     Indication: ASTHMA
     Dosage: UNK UNK, 2X/DAY (2 PUFFS)
     Route: 055
  3. VITAMIN D3 [Concomitant]
     Active Substance: CHOLECALCIFEROL
     Indication: BONE DISORDER
     Dosage: 2000 IU, 1X/DAY
     Route: 048
  4. MONTELUKAST [Concomitant]
     Active Substance: MONTELUKAST SODIUM
     Indication: ASTHMA
     Dosage: 10 MG, 1X/DAY
     Route: 048
  5. COENZYME Q10 [Concomitant]
     Active Substance: UBIDECARENONE
     Indication: BLOOD CHOLESTEROL INCREASED
     Dosage: 100 MG, 1X/DAY
     Route: 048
  6. FOLBIC [Concomitant]
     Active Substance: CYANOCOBALAMIN\FOLIC ACID\PYRIDOXINE
     Indication: CARDIAC DISORDER
     Dosage: 1 DF, DAILY (CYANOCOBALAMIN: 2.5 MG/FOLIC ACID: 25 MG/PYRIDOXINE HYDROCHLORIDE: 2 MG)
     Route: 048
  7. SIMVASTATIN. [Concomitant]
     Active Substance: SIMVASTATIN
     Indication: BLOOD CHOLESTEROL INCREASED
     Dosage: 20 MG, 1X/DAY
     Route: 048
     Dates: end: 201712
  8. FENOFIBRATE. [Concomitant]
     Active Substance: FENOFIBRATE
     Indication: BLOOD TRIGLYCERIDES
     Dosage: 48 MG, 1X/DAY
     Route: 048
  9. RANITIDINE. [Concomitant]
     Active Substance: RANITIDINE
     Indication: GASTROOESOPHAGEAL REFLUX DISEASE
     Dosage: 150 MG, 1X/DAY
     Route: 048
  10. CIPROFLOXACIN. [Suspect]
     Active Substance: CIPROFLOXACIN
     Indication: URINARY TRACT INFECTION
     Dosage: UNK UNK, 2X/DAY 1 TABLET TWICE A DAY
     Route: 048
     Dates: start: 20171208, end: 20171212
  11. POTASSIUM [Concomitant]
     Active Substance: POTASSIUM
     Indication: ELECTROLYTE SUBSTITUTION THERAPY
     Dosage: 20 MEQ, 1X/DAY, (EVERY NIGHT )
     Route: 048

REACTIONS (3)
  - Pain in extremity [Recovering/Resolving]
  - Limb discomfort [Recovering/Resolving]
  - Gait inability [Recovering/Resolving]

NARRATIVE: CASE EVENT DATE: 201712
